FAERS Safety Report 7059538-3 (Version None)
Quarter: 2010Q4

REPORT INFORMATION
  Report Type: 
  Country: None (occurrence: None)
  Receive Date: 20101025
  Receipt Date: 20101011
  Transmission Date: 20110411
  Serious: Yes (Hospitalization)
  Sender: FDA-Public Use
  Company Number: PHHY2010FR55604

PATIENT
  Sex: Male
  Weight: 80 kg

DRUGS (4)
  1. RASILEZ [Suspect]
     Dosage: 300 MG, ONCE PER DAY
     Route: 048
     Dates: start: 20100520, end: 20100720
  2. STAGID [Concomitant]
  3. ANTIHYPERTENSIVE DRUGS [Concomitant]
  4. DIAMICRON [Concomitant]

REACTIONS (5)
  - CHEST PAIN [None]
  - DYSPNOEA [None]
  - FATIGUE [None]
  - MULTIPLE MYELOMA [None]
  - OEDEMA [None]
